FAERS Safety Report 8156373-X (Version None)
Quarter: 2012Q1

REPORT INFORMATION
  Report Type: 
  Country: None (occurrence: None)
  Receive Date: 20120222
  Receipt Date: 20120216
  Transmission Date: 20120608
  Serious: No
  Sender: FDA-Public Use
  Company Number: US-PFIZER INC-2012042868

PATIENT
  Sex: Female
  Weight: 68 kg

DRUGS (2)
  1. PREMARIN [Suspect]
     Indication: HORMONE REPLACEMENT THERAPY
     Dosage: UNK
     Dates: start: 20111201, end: 20120101
  2. ESTRACE [Suspect]
     Indication: HORMONE REPLACEMENT THERAPY
     Dosage: UNK
     Dates: start: 20120101, end: 20120201

REACTIONS (4)
  - VAGINAL DISORDER [None]
  - PARAESTHESIA [None]
  - HEADACHE [None]
  - DYSPNOEA [None]
